FAERS Safety Report 9213580 (Version 1)
Quarter: 2013Q2

REPORT INFORMATION
  Report Type: Spontaneous
  Country: US (occurrence: US)
  Receive Date: 20130405
  Receipt Date: 20130405
  Transmission Date: 20140414
  Serious: Yes (Hospitalization)
  Sender: FDA-Public Use
  Company Number: US-NOVOPROD-374778

PATIENT
  Sex: Male

DRUGS (1)
  1. NOVOLOG MIX 70/30 FLEXPEN [Suspect]
     Indication: TYPE 2 DIABETES MELLITUS
     Dosage: 10 TO 12 UNITS FIVE TIMES A DAY
     Route: 058

REACTIONS (3)
  - Fall [Recovered/Resolved]
  - Blood glucose increased [Recovered/Resolved]
  - Nervousness [Recovered/Resolved]
